FAERS Safety Report 11693411 (Version 1)
Quarter: 2015Q4

REPORT INFORMATION
  Report Type: Spontaneous
  Country: US (occurrence: None)
  Receive Date: 20151102
  Receipt Date: 20151102
  Transmission Date: 20160304
  Serious: No
  Sender: FDA-Public Use
  Company Number: None

PATIENT
  Age: 59 Year
  Sex: Female
  Weight: 63.05 kg

DRUGS (5)
  1. VITAMIN C [Concomitant]
     Active Substance: ASCORBIC ACID
  2. ZYRTEC [Concomitant]
     Active Substance: CETIRIZINE HYDROCHLORIDE
  3. CALCIUM TABLETS [Concomitant]
  4. FLAXSEED [Concomitant]
     Active Substance: FLAX SEED
  5. IMIQUIMOD CREAM 5% [Suspect]
     Active Substance: IMIQUIMOD
     Indication: SKIN PAPILLOMA
     Dosage: 24 COUNT, ONCE DAILY, APPLIED TO A SURFACE USUALLY THE SKIN
     Dates: start: 20150917, end: 20150928

REACTIONS (3)
  - Erythema [None]
  - Pruritus [None]
  - Skin reaction [None]

NARRATIVE: CASE EVENT DATE: 20150917
